FAERS Safety Report 11702296 (Version 1)
Quarter: 2015Q4

REPORT INFORMATION
  Report Type: Spontaneous
  Country: US (occurrence: US)
  Receive Date: 20151105
  Receipt Date: 20151105
  Transmission Date: 20160304
  Serious: Yes (Other)
  Sender: FDA-Public Use
  Company Number: US-BAYER-2015-455041

PATIENT
  Age: 67 Year
  Weight: 57.14 kg

DRUGS (8)
  1. LEVOTHYROXINE. [Concomitant]
     Active Substance: LEVOTHYROXINE
  2. TRAMADOL. [Concomitant]
     Active Substance: TRAMADOL
  3. LINZESS [Concomitant]
     Active Substance: LINACLOTIDE
  4. CELEXA [Concomitant]
     Active Substance: CITALOPRAM HYDROBROMIDE
  5. MILK OF MAGNESIA CHERRY [Suspect]
     Active Substance: MAGNESIUM HYDROXIDE
     Dosage: UNK
  6. KLONOPIN [Concomitant]
     Active Substance: CLONAZEPAM
  7. MILK OF MAGNESIA CHERRY [Suspect]
     Active Substance: MAGNESIUM HYDROXIDE
     Dosage: 8 OUNCE, UNK
     Dates: start: 20151026
  8. CLARITIN [Concomitant]
     Active Substance: LORATADINE

REACTIONS (3)
  - Abdominal pain [Unknown]
  - Product use issue [Unknown]
  - Melaena [Unknown]

NARRATIVE: CASE EVENT DATE: 20151026
